FAERS Safety Report 16700847 (Version 1)
Quarter: 2019Q3

REPORT INFORMATION
  Report Type: Spontaneous
  Country: US (occurrence: US)
  Receive Date: 20190627
  Receipt Date: 20190627
  Transmission Date: 20191004
  Serious: No
  Sender: FDA-Public Use
  Company Number: None

PATIENT
  Age: 55 Year
  Sex: Male

DRUGS (1)
  1. OLUMIANT [Suspect]
     Active Substance: BARICITINIB
     Indication: NEURODERMATITIS
     Route: 048
     Dates: start: 201906

REACTIONS (1)
  - Off label use [None]

NARRATIVE: CASE EVENT DATE: 20190627
